FAERS Safety Report 8568545-0 (Version None)
Quarter: 2012Q3

REPORT INFORMATION
  Report Type: 
  Country: None (occurrence: None)
  Receive Date: 20120803
  Receipt Date: 20120730
  Transmission Date: 20120928
  Serious: Yes (Hospitalization)
  Sender: FDA-Public Use
  Company Number: US-EISAI INC-E2080-00522-SPO-US

PATIENT
  Sex: Male

DRUGS (8)
  1. SABRIL [Suspect]
     Indication: INFANTILE SPASMS
     Route: 048
     Dates: start: 20110902
  2. SABRIL [Suspect]
     Route: 048
     Dates: start: 20111019
  3. LEUCOVORIN CALCIUM [Concomitant]
  4. VITAMIN B6 [Concomitant]
  5. PHENOBARBITAL TAB [Concomitant]
  6. KEPPRA [Concomitant]
  7. BANZEL [Suspect]
     Dosage: UNKNOWN
     Route: 048
     Dates: end: 20120101
  8. SABRIL [Suspect]
     Dosage: 1200 MG IN AM AND 1000 MG IN PM
     Route: 048
     Dates: start: 20120625

REACTIONS (3)
  - VOMITING [None]
  - PNEUMONIA ASPIRATION [None]
  - DEHYDRATION [None]
